FAERS Safety Report 7387624-7 (Version None)
Quarter: 2011Q1

REPORT INFORMATION
  Report Type: 
  Country: None (occurrence: None)
  Receive Date: 20110331
  Receipt Date: 20110324
  Transmission Date: 20110831
  Serious: Yes (Other)
  Sender: FDA-Public Use
  Company Number: US-US-EMD SERONO, INC.-7049908

PATIENT
  Sex: Female

DRUGS (3)
  1. REBIF [Suspect]
     Indication: MULTIPLE SCLEROSIS
     Route: 058
     Dates: start: 20110101, end: 20110201
  2. IBUPROFEN [Concomitant]
  3. REBIF [Suspect]
     Route: 058
     Dates: start: 20110201

REACTIONS (4)
  - PRECANCEROUS CELLS PRESENT [None]
  - RAYNAUD'S PHENOMENON [None]
  - HEADACHE [None]
  - INSOMNIA [None]
